FAERS Safety Report 12644193 (Version 1)
Quarter: 2016Q3

REPORT INFORMATION
  Report Type: Spontaneous
  Country: BR (occurrence: BR)
  Receive Date: 20160811
  Receipt Date: 20160811
  Transmission Date: 20161109
  Serious: Yes (Other)
  Sender: FDA-Public Use
  Company Number: BR-GLAXOSMITHKLINE-BR2016GSK114697

PATIENT
  Age: 62 Year
  Sex: Female
  Weight: 41 kg

DRUGS (2)
  1. BENZODIAZEPINE [Concomitant]
     Active Substance: BENZODIAZEPINE
  2. NIQUITIN [Suspect]
     Active Substance: NICOTINE
     Indication: EX-TOBACCO USER
     Dosage: 1 DF, QD
     Dates: start: 20160725

REACTIONS (2)
  - Headache [Unknown]
  - Seizure [Recovered/Resolved]

NARRATIVE: CASE EVENT DATE: 20160725
